FAERS Safety Report 8989426 (Version 4)
Quarter: 2013Q1

REPORT INFORMATION
  Report Type: Report from Study
  Country: US (occurrence: US)
  Receive Date: 20121227
  Receipt Date: 20130131
  Transmission Date: 20140127
  Serious: Yes (Death)
  Sender: FDA-Public Use
  Company Number: US-ACTELION-A-US2012-76864

PATIENT
  Age: 57 Year
  Sex: Male

DRUGS (3)
  1. VENTAVIS [Suspect]
     Indication: PULMONARY ARTERIAL HYPERTENSION
     Dosage: 5 MCG, Q4HRS
     Route: 055
     Dates: start: 200712, end: 20121220
  2. TRACLEER [Suspect]
     Indication: PULMONARY ARTERIAL HYPERTENSION
     Route: 048
  3. ADCIRCA [Concomitant]

REACTIONS (1)
  - Cardiac disorder [Fatal]
